FAERS Safety Report 6729702-9 (Version None)
Quarter: 2010Q2

REPORT INFORMATION
  Report Type: 
  Country: None (occurrence: None)
  Receive Date: 20100512
  Receipt Date: 20100505
  Transmission Date: 20101027
  Serious: Yes (Hospitalization)
  Sender: FDA-Public Use
  Company Number: TPA2010A02642

PATIENT
  Age: 62 Year
  Sex: Male
  Weight: 98.7 kg

DRUGS (12)
  1. ACTOS [Suspect]
     Indication: TYPE 2 DIABETES MELLITUS
     Dosage: 15 MG, 1 IN 1 D, PER ORAL
     Route: 048
     Dates: start: 20080917, end: 20091216
  2. LANTUS [Suspect]
     Indication: TYPE 2 DIABETES MELLITUS
     Dosage: 16 IU, 1 IN 1 D, SUBCUTANEOUS
     Route: 058
  3. GLIPIZIDE [Suspect]
     Indication: TYPE 2 DIABETES MELLITUS
     Dosage: 10 MG, 2 IN 1 D, PER ORAL
     Route: 048
     Dates: start: 20090504, end: 20091216
  4. HPN-100 (INVESTIGATIONAL DRUG) [Suspect]
     Indication: HEPATIC ENCEPHALOPATHY
     Dates: start: 20091201
  5. PRAVACHOL [Concomitant]
  6. SPIRONOLACTONE [Concomitant]
  7. FUROSEMIDE [Concomitant]
  8. OMEPRAZOLE MAGNESIUM (OMEPRAZOLE MAGNESIUM) [Concomitant]
  9. HALDOL [Concomitant]
  10. MEN'S MULTIVITAMIN (ERGOCALCIFEROL, ASCORBIC ACID, FOLIC ACID, THIAMIN [Concomitant]
  11. ASPIRIN [Concomitant]
  12. LACTULOSE [Concomitant]

REACTIONS (3)
  - HYPOGLYCAEMIA [None]
  - LOSS OF CONSCIOUSNESS [None]
  - POSTURAL ORTHOSTATIC TACHYCARDIA SYNDROME [None]
